FAERS Safety Report 13165812 (Version 1)
Quarter: 2017Q1

REPORT INFORMATION
  Report Type: Spontaneous
  Country: JP (occurrence: JP)
  Receive Date: 20170131
  Receipt Date: 20170131
  Transmission Date: 20170428
  Serious: Yes (Hospitalization)
  Sender: FDA-Public Use
  Company Number: JP-ROCHE-1885549

PATIENT
  Age: 12 Month
  Sex: Male

DRUGS (2)
  1. CEFTRIAXONE. [Suspect]
     Active Substance: CEFTRIAXONE
     Indication: MENINGITIS HAEMOPHILUS
     Dosage: 120 MG/KG/DAY/2 DIVIDED DOSES
     Route: 065
  2. MEROPENEM. [Suspect]
     Active Substance: MEROPENEM
     Indication: MENINGITIS HAEMOPHILUS
     Dosage: 140 MG/KG/DAY/4 DIVIDED DOSES
     Route: 065

REACTIONS (2)
  - Meningitis [Unknown]
  - Drug ineffective [Unknown]
